FAERS Safety Report 21028837 (Version 2)
Quarter: 2022Q3

REPORT INFORMATION
  Report Type: Spontaneous
  Country: DE (occurrence: None)
  Receive Date: 20220630
  Receipt Date: 20220707
  Transmission Date: 20221027
  Serious: Yes (Other)
  Sender: FDA-Public Use
  Company Number: 2022A238958

PATIENT
  Sex: Female

DRUGS (9)
  1. GOSERELIN ACETATE [Suspect]
     Active Substance: GOSERELIN ACETATE
     Indication: Breast cancer
     Route: 058
  2. TAGRISSO [Suspect]
     Active Substance: OSIMERTINIB
     Indication: Lung neoplasm malignant
     Route: 048
     Dates: start: 20220628
  3. INCENSE [Concomitant]
     Route: 065
  4. LEVOTHYROXINE SODIUM [Concomitant]
     Active Substance: LEVOTHYROXINE SODIUM
     Dosage: 150
     Route: 065
  5. MAGNESIUM [Concomitant]
     Active Substance: MAGNESIUM
     Dosage: 375
     Route: 065
  6. CALCIUM [Concomitant]
     Active Substance: CALCIUM
     Dosage: 600
     Route: 065
  7. NEYVIT [Concomitant]
     Route: 065
  8. OPC CELL PROTECTION [Concomitant]
     Route: 065
  9. SELEN-LOGES [Concomitant]
     Route: 065

REACTIONS (2)
  - Lung neoplasm malignant [Unknown]
  - Pleural effusion [Unknown]
